FAERS Safety Report 25341861 (Version 3)
Quarter: 2025Q3

REPORT INFORMATION
  Report Type: Spontaneous
  Country: JP (occurrence: JP)
  Receive Date: 20250521
  Receipt Date: 20250707
  Transmission Date: 20251020
  Serious: Yes (Hospitalization)
  Sender: EISAI
  Company Number: JP-Eisai-202414895_LEN_P_1

PATIENT
  Sex: Male

DRUGS (2)
  1. LENVIMA [Suspect]
     Active Substance: LENVATINIB
     Indication: Thyroid cancer
  2. LENVIMA [Suspect]
     Active Substance: LENVATINIB

REACTIONS (4)
  - Pneumothorax [Unknown]
  - Fatigue [Unknown]
  - Malaise [Unknown]
  - Hypertension [Unknown]
